FAERS Safety Report 10151065 (Version 2)
Quarter: 2014Q2

REPORT INFORMATION
  Report Type: Report from Study
  Country: US (occurrence: US)
  Receive Date: 20140502
  Receipt Date: 20140515
  Transmission Date: 20141212
  Serious: Yes (Other)
  Sender: FDA-Public Use
  Company Number: US-ACTELION-A-NJ2014-98055

PATIENT
  Age: 80 Year
  Sex: Male

DRUGS (3)
  1. TRACLEER [Suspect]
     Indication: PULMONARY ARTERIAL HYPERTENSION
     Dosage: UNK
     Route: 048
  2. ADCIRCA [Concomitant]
  3. COUMADIN [Concomitant]

REACTIONS (4)
  - Road traffic accident [Unknown]
  - Skeletal injury [Unknown]
  - Feeling abnormal [Unknown]
  - Malaise [Unknown]
